FAERS Safety Report 8510937-X (Version None)
Quarter: 2012Q3

REPORT INFORMATION
  Report Type: 
  Country: None (occurrence: None)
  Receive Date: 20120716
  Receipt Date: 20120703
  Transmission Date: 20120928
  Serious: Yes (Hospitalization)
  Sender: FDA-Public Use
  Company Number: JP-JNJFOC-20120604221

PATIENT
  Age: 64 Year
  Sex: Female
  Weight: 73 kg

DRUGS (10)
  1. DOVONEX [Concomitant]
     Indication: PSORIASIS
     Route: 065
     Dates: start: 20050301
  2. ACETAMINOPHEN [Concomitant]
     Indication: PROPHYLAXIS
     Route: 048
     Dates: start: 20120507
  3. CLOBETASOL PROPIONATE [Concomitant]
     Indication: PSORIASIS
     Route: 065
     Dates: start: 20050301
  4. AMLODIPINE [Concomitant]
     Indication: HYPERTENSION
     Route: 048
  5. ISONIAZID [Concomitant]
     Indication: PROPHYLAXIS
     Dosage: 2 TABLETS
     Route: 048
  6. REMICADE [Suspect]
     Indication: PSORIASIS
     Dosage: THE PATIENT HAS RECEIVED TOTAL OF 5 INFUSIONS
     Route: 042
     Dates: start: 20120522
  7. REMICADE [Suspect]
     Route: 042
     Dates: start: 20070122
  8. TALION [Concomitant]
     Indication: PROPHYLAXIS
     Dosage: 2 TABLETS
     Route: 048
     Dates: start: 20120522, end: 20120523
  9. REMICADE [Suspect]
     Route: 042
     Dates: start: 20070205
  10. STELARA [Concomitant]
     Route: 065
     Dates: start: 20110101

REACTIONS (6)
  - MESENTERIC PANNICULITIS [None]
  - ARTHRALGIA [None]
  - PYREXIA [None]
  - C-REACTIVE PROTEIN INCREASED [None]
  - DRUG INEFFECTIVE [None]
  - TYPE IV HYPERSENSITIVITY REACTION [None]
